FAERS Safety Report 16226612 (Version 1)
Quarter: 2019Q2

REPORT INFORMATION
  Report Type: Spontaneous
  Country: JP (occurrence: JP)
  Receive Date: 20190423
  Receipt Date: 20190423
  Transmission Date: 20190711
  Serious: Yes (Hospitalization)
  Sender: FDA-Public Use
  Company Number: JP-GLAXOSMITHKLINE-JP2019JPN071902

PATIENT
  Sex: Male

DRUGS (4)
  1. AVOLVE [Suspect]
     Active Substance: DUTASTERIDE
     Indication: BENIGN PROSTATIC HYPERPLASIA
     Dosage: UNK
     Route: 048
     Dates: start: 2012, end: 2018
  2. AVOLVE [Suspect]
     Active Substance: DUTASTERIDE
     Dosage: UNK
     Route: 048
     Dates: start: 2018
  3. URIEF [Concomitant]
     Active Substance: SILODOSIN
     Dosage: UNK
     Dates: end: 201904
  4. EVIPROSTAT-DB [Concomitant]
     Dosage: UNK
     Dates: end: 201904

REACTIONS (3)
  - Dysuria [Unknown]
  - Feeding disorder [Unknown]
  - Condition aggravated [Unknown]

NARRATIVE: CASE EVENT DATE: 2018
